FAERS Safety Report 5793070-X (Version None)
Quarter: 2008Q2

REPORT INFORMATION
  Report Type: 
  Country: None (occurrence: None)
  Receive Date: 20080626
  Receipt Date: 20080626
  Transmission Date: 20081010
  Serious: Yes (Hospitalization)
  Sender: FDA-Public Use
  Company Number: None

PATIENT
  Sex: Male
  Weight: 22.8159 kg

DRUGS (16)
  1. BORTEZOMIB [Suspect]
     Indication: NEUROBLASTOMA
     Dosage: 1.04 MG  D1, 4, 8, 11  IV
     Route: 042
     Dates: start: 20080519
  2. BORTEZOMIB [Suspect]
     Indication: NEUROBLASTOMA
     Dosage: 1.04 MG  D1, 4, 8, 11  IV
     Route: 042
     Dates: start: 20080522
  3. BORTEZOMIB [Suspect]
     Indication: NEUROBLASTOMA
     Dosage: 1.04 MG  D1, 4, 8, 11  IV
     Route: 042
     Dates: start: 20080527
  4. BORTEZOMIB [Suspect]
     Indication: NEUROBLASTOMA
     Dosage: 1.04 MG  D1, 4, 8, 11  IV
     Route: 042
     Dates: start: 20080530
  5. IRINOTECAN [Suspect]
     Indication: NEUROBLASTOMA
     Dosage: 30 MG  D1-5 OF 21D CYCL  IV
     Route: 042
     Dates: start: 20080519
  6. IRINOTECAN [Suspect]
     Indication: NEUROBLASTOMA
     Dosage: 30 MG  D1-5 OF 21D CYCL  IV
     Route: 042
     Dates: start: 20080520
  7. IRINOTECAN [Suspect]
     Indication: NEUROBLASTOMA
     Dosage: 30 MG  D1-5 OF 21D CYCL  IV
     Route: 042
     Dates: start: 20080521
  8. IRINOTECAN [Suspect]
     Indication: NEUROBLASTOMA
     Dosage: 30 MG  D1-5 OF 21D CYCL  IV
     Route: 042
     Dates: start: 20080522
  9. IRINOTECAN [Suspect]
     Indication: NEUROBLASTOMA
     Dosage: 30 MG  D1-5 OF 21D CYCL  IV
     Route: 042
     Dates: start: 20080523
  10. CEFPODOXIME PROXETIL [Concomitant]
  11. HEPARIN [Concomitant]
  12. IMODIUM [Concomitant]
  13. OXYCODON [Concomitant]
  14. POTASSIUM IODIDE [Concomitant]
  15. PRILOSEC [Concomitant]
  16. ZOFRAN [Concomitant]

REACTIONS (3)
  - BACILLUS INFECTION [None]
  - BLOOD CULTURE POSITIVE [None]
  - PYREXIA [None]
